FAERS Safety Report 25039443 (Version 2)
Quarter: 2025Q3

REPORT INFORMATION
  Report Type: Report from Study
  Country: US (occurrence: US)
  Receive Date: 20250305
  Receipt Date: 20250810
  Transmission Date: 20251021
  Serious: Yes (Other)
  Sender: ALEXION PHARMACEUTICALS
  Company Number: US-AstraZeneca-CH-00816744A

PATIENT
  Sex: Male
  Weight: 74.4 kg

DRUGS (1)
  1. OSIMERTINIB [Suspect]
     Active Substance: OSIMERTINIB
     Indication: Lung neoplasm malignant
     Dosage: 80 MILLIGRAM, QD
     Dates: start: 20241001

REACTIONS (6)
  - Haemorrhage urinary tract [Unknown]
  - Blood urine present [Unknown]
  - Abdominal pain [Unknown]
  - Erythema [Unknown]
  - Diarrhoea [Unknown]
  - Fatigue [Unknown]
